FAERS Safety Report 4781674-2 (Version None)
Quarter: 2005Q3

REPORT INFORMATION
  Report Type: 
  Country: None (occurrence: None)
  Receive Date: 20050927
  Receipt Date: 20050912
  Transmission Date: 20060218
  Serious: Yes (Hospitalization)
  Sender: FDA-Public Use
  Company Number: 2005-01808

PATIENT
  Age: 74 Year
  Sex: Male
  Weight: 70 kg

DRUGS (8)
  1. VELCADE [Suspect]
     Indication: MULTIPLE MYELOMA
     Dosage: 2.00 MG, INTRAVENOUS
     Route: 042
     Dates: start: 20050617, end: 20050804
  2. DEXAMETHASONE [Concomitant]
  3. DURAGESIC-100 [Concomitant]
  4. RED BLOOD CELLS [Concomitant]
  5. CEFIXIME         (CEFIXIME) [Concomitant]
  6. PREDNIHEXAL          (PREDNISOLOLNE ACETATE) [Concomitant]
  7. PANTOPRAZOLE SODIUM [Concomitant]
  8. NEURONTIN [Concomitant]

REACTIONS (9)
  - BLOOD ALKALINE PHOSPHATASE INCREASED [None]
  - BLOOD LACTATE DEHYDROGENASE INCREASED [None]
  - CLOSTRIDIUM COLITIS [None]
  - EPIDIDYMITIS [None]
  - GAMMA-GLUTAMYLTRANSFERASE INCREASED [None]
  - HAEMOGLOBIN DECREASED [None]
  - NERVOUS SYSTEM DISORDER [None]
  - SOMNOLENCE [None]
  - UROSEPSIS [None]
